FAERS Safety Report 8739842 (Version 2)
Quarter: 2013Q4

REPORT INFORMATION
  Report Type: Report from Study
  Country: US (occurrence: US)
  Receive Date: 20120823
  Receipt Date: 20131105
  Transmission Date: 20140711
  Serious: Yes (Other)
  Sender: FDA-Public Use
  Company Number: US-009507513-2011SP058259

PATIENT
  Sex: Female
  Weight: 68.49 kg

DRUGS (3)
  1. PEGINTRON [Suspect]
     Indication: HEPATITIS C
     Dosage: UNK UNK, UNKNOWN
     Route: 065
     Dates: start: 20110908, end: 20120809
  2. RIBAVIRIN (WARRICK) [Suspect]
     Dosage: UNK UNK, UNKNOWN
     Route: 065
     Dates: start: 20110908, end: 20120809
  3. TELAPREVIR [Concomitant]
     Indication: HEPATITIS C
     Dosage: UNK UNK, UNKNOWN
     Route: 065
     Dates: start: 20110908, end: 20111201

REACTIONS (16)
  - Anaemia [Unknown]
  - Mental impairment [Unknown]
  - Hypoaesthesia [Unknown]
  - Fatigue [Unknown]
  - Asthenia [Unknown]
  - Malaise [Unknown]
  - Diarrhoea [Unknown]
  - Weight decreased [Unknown]
  - Nausea [Unknown]
  - White blood cell count decreased [Unknown]
  - Alopecia [Unknown]
  - Red blood cell count decreased [Unknown]
  - Vein disorder [Unknown]
  - Vomiting [Unknown]
  - Non-consummation [Unknown]
  - Feeling abnormal [Unknown]
